FAERS Safety Report 17058850 (Version 1)
Quarter: 2019Q4

REPORT INFORMATION
  Report Type: Spontaneous
  Country: US (occurrence: US)
  Receive Date: 20191121
  Receipt Date: 20191121
  Transmission Date: 20200122
  Serious: Yes (Death, Hospitalization, Other)
  Sender: FDA-Public Use
  Company Number: US-TEVA-2019-US-1138736

PATIENT
  Age: 70 Year
  Sex: Male

DRUGS (3)
  1. PHOTOFRIN [Suspect]
     Active Substance: PORFIMER SODIUM
     Indication: LUNG SQUAMOUS CELL CARCINOMA RECURRENT
     Dosage: PORFIMER SODIUM INFUSION WAS PERFORMED AND THE PATIENT WAS TAKEN FOR PHOTOACTIVATION 48 HOURS AFT...
     Route: 050
  2. NIVOLUMAB [Concomitant]
     Active Substance: NIVOLUMAB
     Indication: LUNG SQUAMOUS CELL CARCINOMA RECURRENT
     Route: 065
  3. PACLITAXEL. [Suspect]
     Active Substance: PACLITAXEL
     Indication: LUNG SQUAMOUS CELL CARCINOMA RECURRENT
     Route: 050

REACTIONS (4)
  - Haemoptysis [Fatal]
  - Bronchial fistula [Fatal]
  - Mediastinal disorder [Fatal]
  - Incorrect route of product administration [Unknown]
